FAERS Safety Report 13469151 (Version 1)
Quarter: 2017Q2

REPORT INFORMATION
  Report Type: Report from Study
  Country: IQ (occurrence: IQ)
  Receive Date: 20170421
  Receipt Date: 20170421
  Transmission Date: 20170830
  Serious: Yes (Other)
  Sender: FDA-Public Use
  Company Number: IQ-JNJFOC-20170414830

PATIENT

DRUGS (1)
  1. INFLIXIMAB, RECOMBINANT [Suspect]
     Active Substance: INFLIXIMAB
     Indication: COLITIS ULCERATIVE
     Route: 042

REACTIONS (11)
  - Injection site pain [Recovered/Resolved]
  - Injection site reaction [Recovered/Resolved]
  - Hypersensitivity [Recovered/Resolved]
  - Product use issue [Unknown]
  - Adverse drug reaction [Recovered/Resolved]
  - Adverse event [Recovered/Resolved]
  - Pneumonia [Recovered/Resolved]
  - Oesophageal candidiasis [Recovered/Resolved]
  - Leukopenia [Recovered/Resolved]
  - Infection [Recovered/Resolved]
  - Off label use [Unknown]
